FAERS Safety Report 8229302-8 (Version None)
Quarter: 2012Q1

REPORT INFORMATION
  Report Type: 
  Country: None (occurrence: None)
  Receive Date: 20120322
  Receipt Date: 20120320
  Transmission Date: 20120608
  Serious: Yes (Other)
  Sender: FDA-Public Use
  Company Number: VE-PFIZER INC-2012065825

PATIENT
  Age: 88 Year
  Sex: Female

DRUGS (1)
  1. LIPITOR [Suspect]
     Dosage: 40 MG, 1X/DAY
     Route: 048
     Dates: start: 20111201, end: 20120301

REACTIONS (2)
  - AMNESIA [None]
  - COORDINATION ABNORMAL [None]
